FAERS Safety Report 8417604 (Version 3)
Quarter: 2012Q4

REPORT INFORMATION
  Report Type: 
  Country: US (occurrence: US)
  Receive Date: 20120221
  Receipt Date: 20121227
  Transmission Date: 20130627
  Serious: Yes (Other)
  Sender: FDA-Public Use
  Company Number: US-PFIZER INC-2012041107

PATIENT
  Age: 46 Year
  Sex: Male

DRUGS (2)
  1. NEURONTIN [Suspect]
     Dosage: 600 mg, 3x/day
  2. NEURONTIN [Suspect]
     Dosage: 300 mg, 3x/day

REACTIONS (1)
  - Neuropathy peripheral [Unknown]
